FAERS Safety Report 5166574-0 (Version None)
Quarter: 2006Q4

REPORT INFORMATION
  Report Type: 
  Country: None (occurrence: None)
  Receive Date: 20061207
  Receipt Date: 20060425
  Transmission Date: 20070319
  Serious: Yes (Other)
  Sender: FDA-Public Use
  Company Number: BR-PURDUE-USA_2006_0024096

PATIENT
  Age: 44 Year
  Sex: Female

DRUGS (2)
  1. MORPHINE SULFATE [Suspect]
     Indication: SPINAL ANAESTHESIA
     Dosage: 100 MCG, SEE TEXT
     Route: 037
  2. BUPIVACAINE [Suspect]
     Indication: SPINAL ANAESTHESIA
     Dosage: 20 MG, SEE TEXT

REACTIONS (4)
  - BODY TEMPERATURE DECREASED [None]
  - HYPERHIDROSIS [None]
  - HYPOTHERMIA [None]
  - SOMNOLENCE [None]
